FAERS Safety Report 9882047 (Version 2)
Quarter: 2014Q2

REPORT INFORMATION
  Report Type: Spontaneous
  Country: US (occurrence: None)
  Receive Date: 20140205
  Receipt Date: 20140408
  Transmission Date: 20141212
  Serious: Yes (Hospitalization, Other)
  Sender: FDA-Public Use
  Company Number: OPCR20140047

PATIENT
  Age: 27 Year
  Sex: Male

DRUGS (1)
  1. OPANA ER [Suspect]
     Indication: DRUG ABUSE
     Dosage: UNK, UNK, INTRAVENOUS
     Route: 042

REACTIONS (6)
  - Microangiopathic haemolytic anaemia [None]
  - Staphylococcal sepsis [None]
  - Renal failure acute [None]
  - Endocarditis [None]
  - Drug abuse [None]
  - Incorrect route of drug administration [None]
